FAERS Safety Report 19964600 (Version 2)
Quarter: 2021Q4

REPORT INFORMATION
  Report Type: Spontaneous
  Country: FR (occurrence: FR)
  Receive Date: 20211018
  Receipt Date: 20211028
  Transmission Date: 20220303
  Serious: Yes (Hospitalization)
  Sender: FDA-Public Use
  Company Number: None

PATIENT
  Age: 43 Year
  Sex: Male
  Weight: 70 kg

DRUGS (8)
  1. ZOPICLONE [Suspect]
     Active Substance: ZOPICLONE
     Indication: Sleep disorder
     Dosage: UNK, INCONNUE
     Route: 048
     Dates: start: 202105, end: 20210616
  2. ESOMEPRAZOLE. [Suspect]
     Active Substance: ESOMEPRAZOLE MAGNESIUM
     Indication: Product used for unknown indication
     Dosage: UNK, INCONNUE
     Route: 048
     Dates: start: 2021, end: 20210616
  3. VINCRISTINE SULFATE [Suspect]
     Active Substance: VINCRISTINE SULFATE
     Indication: Anaplastic astrocytoma
     Dosage: 2 MILLIGRAM
     Route: 042
     Dates: start: 20210504, end: 20210527
  4. PROCARBAZINE HYDROCHLORIDE [Suspect]
     Active Substance: PROCARBAZINE HYDROCHLORIDE
     Indication: Anaplastic astrocytoma
     Dosage: 100 MILLIGRAM, QD
     Route: 048
     Dates: start: 20210504, end: 20210517
  5. KEPPRA [Suspect]
     Active Substance: LEVETIRACETAM
     Indication: Epilepsy
     Dosage: 1 GRAM, QD
     Route: 048
     Dates: start: 20210527, end: 20210616
  6. LOMUSTINE [Suspect]
     Active Substance: LOMUSTINE
     Indication: Anaplastic astrocytoma
     Dosage: 160 MILLIGRAM, WEEK
     Route: 048
     Dates: start: 20210427, end: 20210609
  7. LANSOPRAZOLE [Concomitant]
     Active Substance: LANSOPRAZOLE
     Indication: Product used for unknown indication
     Dosage: INCONNUE
     Dates: start: 2021, end: 20210616
  8. MEDROL [Concomitant]
     Active Substance: METHYLPREDNISOLONE
     Dosage: 1 DOSAGE FORM, QD
     Route: 048
     Dates: start: 20210319

REACTIONS (2)
  - Toxic skin eruption [Recovering/Resolving]
  - Hepatic enzyme increased [Recovering/Resolving]

NARRATIVE: CASE EVENT DATE: 20210614
